FAERS Safety Report 6369612-2 (Version None)
Quarter: 2009Q3

REPORT INFORMATION
  Report Type: 
  Country: None (occurrence: None)
  Receive Date: 20090923
  Receipt Date: 20090921
  Transmission Date: 20100115
  Serious: Yes (Death, Hospitalization)
  Sender: FDA-Public Use
  Company Number: GB-TEVA-209818ISR

PATIENT
  Sex: Female

DRUGS (1)
  1. MESALAZINE [Suspect]

REACTIONS (1)
  - RESPIRATORY FAILURE [None]
